FAERS Safety Report 8418029-5 (Version None)
Quarter: 2012Q2

REPORT INFORMATION
  Report Type: 
  Country: None (occurrence: None)
  Receive Date: 20120607
  Receipt Date: 20120601
  Transmission Date: 20120825
  Serious: Yes (Other)
  Sender: FDA-Public Use
  Company Number: US-BAYER-2012-054991

PATIENT
  Sex: Female

DRUGS (2)
  1. MIRENA [Suspect]
     Indication: CONTRACEPTION
     Dosage: 20 MCG/24HR, CONT
     Route: 015
     Dates: start: 20120601, end: 20120601
  2. MIRENA [Suspect]
     Dosage: 20 MCG/24HR, CONT
     Route: 015
     Dates: start: 20060101, end: 20090101

REACTIONS (4)
  - PROCEDURAL HAEMORRHAGE [None]
  - PROCEDURAL PAIN [None]
  - ULTRASOUND BREAST ABNORMAL [None]
  - DEVICE DIFFICULT TO USE [None]
